FAERS Safety Report 16958477 (Version 1)
Quarter: 2019Q4

REPORT INFORMATION
  Report Type: Spontaneous
  Country: GR (occurrence: GR)
  Receive Date: 20191024
  Receipt Date: 20191024
  Transmission Date: 20200122
  Serious: Yes (Hospitalization)
  Sender: FDA-Public Use
  Company Number: GR-MYLANLABS-2019M1099625

PATIENT
  Age: 84 Year
  Sex: Female

DRUGS (3)
  1. PROPAFENONE HCL [Suspect]
     Active Substance: PROPAFENONE HYDROCHLORIDE
     Indication: PRODUCT USED FOR UNKNOWN INDICATION
     Dosage: 225 MILLIGRAM, BID
  2. CONCOR [Suspect]
     Active Substance: BISOPROLOL FUMARATE
     Indication: PRODUCT USED FOR UNKNOWN INDICATION
     Dosage: 10 MILLIGRAM (1/2*1)
  3. ELIQUIS [Concomitant]
     Active Substance: APIXABAN
     Indication: ANTICOAGULANT THERAPY
     Dosage: 2.5 (1X2)

REACTIONS (6)
  - Drug ineffective [Unknown]
  - Tachyarrhythmia [Unknown]
  - Ejection fraction decreased [Unknown]
  - Dyspnoea [Unknown]
  - Left ventricular enlargement [Unknown]
  - Mitral valve incompetence [Unknown]
